FAERS Safety Report 9631444 (Version 2)
Quarter: 2013Q4

REPORT INFORMATION
  Report Type: Report from Study
  Country: BR (occurrence: BR)
  Receive Date: 20131018
  Receipt Date: 20131028
  Transmission Date: 20140711
  Serious: Yes (Other)
  Sender: FDA-Public Use
  Company Number: BR-ROCHE-1290935

PATIENT
  Sex: Female
  Weight: 85 kg

DRUGS (3)
  1. XOLAIR [Suspect]
     Indication: ASTHMA
     Route: 065
  2. XOLAIR [Suspect]
     Dosage: 2 AMPOULES FOR EVERY 30 DAYS
     Route: 065
  3. LOSARTAN [Concomitant]

REACTIONS (1)
  - Asthma [Recovering/Resolving]
